FAERS Safety Report 22696552 (Version 7)
Quarter: 2024Q3

REPORT INFORMATION
  Report Type: Spontaneous
  Country: PL (occurrence: PL)
  Receive Date: 20230712
  Receipt Date: 20240928
  Transmission Date: 20241016
  Serious: Yes (Life-Threatening, Other)
  Sender: CELLTRION
  Company Number: PL-CELLTRION INC.-2023PL013741

PATIENT

DRUGS (30)
  1. RITUXIMAB [Suspect]
     Active Substance: RITUXIMAB
     Indication: High grade B-cell lymphoma Burkitt-like lymphoma
     Dosage: EVERY 3 WEEKS (ADDITIONAL INFORMATION ON DRUG: R-HYPER--CVAD)(CUMULATIVE DOSE: 4 CYCLES)UNK, Q3W
     Route: 065
     Dates: start: 2020
  2. RITUXIMAB [Suspect]
     Active Substance: RITUXIMAB
     Dosage: EVERY 3 WEEKS (CUMULATIVE DOSE: 2 CYCLES,Q3W; ADDITIONAL INFORMATION ON DRUG: R-CHOP)
     Route: 065
  3. RITUXIMAB [Suspect]
     Active Substance: RITUXIMAB
     Dosage: CUMULATIVE DOSE: 2 CYCLES
     Route: 065
  4. RITUXIMAB [Suspect]
     Active Substance: RITUXIMAB
     Dosage: EVERY 3 WEEKS (CUMULATIVE DOSE: 4 CYCLES, ~IMMUNOCHEMOTHERAPY (R-HYPER-CVAD), Q3W)
     Route: 065
  5. RITUXIMAB [Suspect]
     Active Substance: RITUXIMAB
     Dosage: UNK
  6. DOXORUBICIN [Suspect]
     Active Substance: DOXORUBICIN
     Indication: High grade B-cell lymphoma Burkitt-like lymphoma
     Dosage: EVERY 3 WEEKS (ADDITIONAL INFORMATION ON DRUG: R-HYPER--CVAD)(CUMULATIVE DOSE: 4 CYCLES)/CUMULATIVE
     Route: 065
     Dates: start: 2020
  7. DOXORUBICIN [Suspect]
     Active Substance: DOXORUBICIN
     Dosage: EVERY 3 WEEKS (CUMULATIVE DOSE: 4 CYCLES, IIMMUNOCHEMOTHERAPY (R-HYPER-CVAD); ADDITIONAL INFORMATION
     Route: 065
  8. DOXORUBICIN [Suspect]
     Active Substance: DOXORUBICIN
     Dosage: EVERY 3 WEEKS/UNK, Q3W
     Route: 065
     Dates: start: 2020
  9. DOXORUBICIN [Suspect]
     Active Substance: DOXORUBICIN
     Dosage: UNK
  10. METHOTREXATE [Suspect]
     Active Substance: METHOTREXATE
     Indication: High grade B-cell lymphoma Burkitt-like lymphoma
     Dosage: EVERY 3 WEEKS (ADDITIONAL INFORMATION ON DRUG: R-HYPER--CVAD)(CUMULATIVE DOSE: 4 CYCLES) ~IMMUNOCHEM
     Route: 065
     Dates: start: 2020
  11. METHOTREXATE [Suspect]
     Active Substance: METHOTREXATE
     Dosage: 4 CYCLES (ADDITIONAL INFORMATION ON DRUG: R-HYPER--CVAD)(CUMULATIVE DOSE: 4 CYCLES)(4 CYCLES)
     Dates: start: 2020
  12. METHOTREXATE [Suspect]
     Active Substance: METHOTREXATE
     Dosage: EVERY 3 WEEK (Q3W, CUMULATIVE DOSE: 4 CYCLES, ~IMMUNOCHEMOTHERAPY (R-HYPER-CVAD)
     Route: 065
  13. DEXAMETHASONE [Suspect]
     Active Substance: DEXAMETHASONE
     Indication: High grade B-cell lymphoma Burkitt-like lymphoma
     Dosage: EVERY 3 WEEKS/UNK, Q3W/IMMUNOCHEMOTHERAPY (R-HYPER-CVAD)
     Route: 065
     Dates: start: 2020
  14. DEXAMETHASONE [Suspect]
     Active Substance: DEXAMETHASONE
     Dosage: 4 CYCLES
  15. DEXAMETHASONE [Suspect]
     Active Substance: DEXAMETHASONE
     Dosage: UNK, CYCLIC, CUMULATIVE DOSE: 4 CYCLES, ~IMMUNOCHEMOTHERAPY (R-HYPER-CVAD), Q3W
     Route: 065
  16. DEXAMETHASONE [Suspect]
     Active Substance: DEXAMETHASONE
     Dosage: 1 WEEK/UNK, Q3W
     Route: 065
     Dates: start: 2020
  17. VINCRISTINE [Suspect]
     Active Substance: VINCRISTINE
     Indication: High grade B-cell lymphoma Burkitt-like lymphoma
     Dosage: EVERY 3 WEEKS (ADDITIONAL INFORMATION ON DRUG: R-HYPER--CVAD)(CUMULATIVE DOSE: 4 CYCLES)/UNK, Q3W, C
     Route: 065
     Dates: start: 2020
  18. VINCRISTINE [Suspect]
     Active Substance: VINCRISTINE
     Dosage: 1 WEEK/UNK, Q3W
     Route: 065
     Dates: start: 2020
  19. VINCRISTINE [Suspect]
     Active Substance: VINCRISTINE
     Dosage: UNK, Q3W, CUMULATIVE DOSE: 4 CYCLES RCHOP
     Route: 065
  20. VINCRISTINE [Suspect]
     Active Substance: VINCRISTINE
     Dosage: UNK
  21. CYTARABINE [Suspect]
     Active Substance: CYTARABINE
     Indication: High grade B-cell lymphoma Burkitt-like lymphoma
     Dosage: 4 CYCLES (ADDITIONAL INFORMATION ON DRUG: R-HYPER--CVAD)(CUMULATIVE DOSE: 4 CYCLES)(4 CYCLES)
  22. CYTARABINE [Suspect]
     Active Substance: CYTARABINE
     Dosage: EVERY 3 WEEKS (ADDITIONAL INFORMATION ON DRUG: R-HYPER--CVAD)(CCUMULATIVE DOSE: 4 CYCLES)/UNK, CYCLI
     Route: 065
     Dates: start: 2020
  23. CYTARABINE [Suspect]
     Active Substance: CYTARABINE
     Dosage: EVERY 3 WEEKS/UNK, CYCLIC, Q3W
     Route: 065
     Dates: start: 2020
  24. PREDNISOLONE [Suspect]
     Active Substance: PREDNISOLONE
     Indication: Product used for unknown indication
     Dosage: UNK, Q3W/ R-CHOP
     Route: 065
     Dates: start: 2020
  25. PREDNISOLONE [Suspect]
     Active Substance: PREDNISOLONE
     Dosage: 1 DAY/CUMULATIVE DOSE: 2 CYCLES, Q3W
     Route: 065
     Dates: start: 2020
  26. CYCLOPHOSPHAMIDE [Suspect]
     Active Substance: CYCLOPHOSPHAMIDE
     Indication: High grade B-cell lymphoma Burkitt-like lymphoma
     Dosage: EVERY 3 WEEKS (ADDITIONAL INFORMATION ON DRUG: R-HYPER--CVAD)(CUMULATIVE DOSE: 4 CYCLES)/CUMULATIVE
     Route: 065
     Dates: start: 2020
  27. CYCLOPHOSPHAMIDE [Suspect]
     Active Substance: CYCLOPHOSPHAMIDE
     Dosage: UNK, CYCLIC, CUMULATIVE DOSE: 4 CYCLES, IMMUNOCHEMOTHERAPY (R-HYPER-CVAD)
     Route: 065
  28. CYCLOPHOSPHAMIDE [Suspect]
     Active Substance: CYCLOPHOSPHAMIDE
     Dosage: 1 WEEK/UNK, Q3W
     Route: 065
     Dates: start: 2020
  29. CYCLOPHOSPHAMIDE [Suspect]
     Active Substance: CYCLOPHOSPHAMIDE
     Dosage: CUMULATIVE DOSE: 2 CYCLES, ADDITIONAL INFORMATION ON DRUG (FREE TEXT): R-CHOP
  30. CYCLOPHOSPHAMIDE [Suspect]
     Active Substance: CYCLOPHOSPHAMIDE
     Dosage: UNK

REACTIONS (5)
  - Neutropenia [Unknown]
  - Neutropenia [Unknown]
  - Myelosuppression [Unknown]
  - Off label use [Unknown]
  - Intentional product use issue [Unknown]
